FAERS Safety Report 8409580 (Version 2)
Quarter: 2013Q2

REPORT INFORMATION
  Report Type: Report from Study
  Country: US (occurrence: US)
  Receive Date: 20120216
  Receipt Date: 20130628
  Transmission Date: 20140414
  Serious: Yes (Other)
  Sender: FDA-Public Use
  Company Number: US-ROCHE-1033191

PATIENT
  Sex: 0

DRUGS (2)
  1. RITUXIMAB [Suspect]
     Indication: CHRONIC LYMPHOCYTIC LEUKAEMIA
     Dosage: WITH THE OPTION OF SPLITTING THE DOSE BETWEEN DAYS 1 AND 3 IN THE FIRST WEEK
     Route: 042
  2. ALEMTUZUMAB [Suspect]
     Indication: CHRONIC LYMPHOCYTIC LEUKAEMIA
     Route: 058

REACTIONS (21)
  - Infusion related reaction [Unknown]
  - Neutropenia [Unknown]
  - Thrombocytopenia [Unknown]
  - Rash [Unknown]
  - Autoimmune haemolytic anaemia [Unknown]
  - Pulmonary embolism [Unknown]
  - Staphylococcal bacteraemia [Unknown]
  - Colonic abscess [Unknown]
  - Pneumonia cryptococcal [Unknown]
  - Post transplant lymphoproliferative disorder [Unknown]
  - Colon cancer metastatic [Unknown]
  - Hyperglycaemia [Unknown]
  - Fatigue [Unknown]
  - Hypersensitivity [Unknown]
  - Hyperkalaemia [Unknown]
  - Hyponatraemia [Unknown]
  - Retinal detachment [Unknown]
  - Alanine aminotransferase increased [Unknown]
  - Headache [Unknown]
  - Constipation [Unknown]
  - Cytokine release syndrome [Unknown]
